FAERS Safety Report 5285576-7 (Version None)
Quarter: 2007Q1

REPORT INFORMATION
  Report Type: 
  Country: None (occurrence: None)
  Receive Date: 20061229
  Receipt Date: 20061017
  Transmission Date: 20070707
  Serious: Yes (Other)
  Sender: FDA-Public Use
  Company Number: 2006UW20024

PATIENT
  Age: 76 Year
  Sex: Male
  Weight: 83.914 kg

DRUGS (5)
  1. CRESTOR [Suspect]
     Indication: BLOOD CHOLESTEROL INCREASED
     Dosage: 10 MG PO
     Route: 048
     Dates: start: 20060601
  2. TOPROL-XL [Concomitant]
  3. LISINOPRIL [Concomitant]
  4. ZETIA [Concomitant]
  5. ACETYLSALICYLIC ACID SRT [Concomitant]

REACTIONS (3)
  - ABDOMINAL PAIN [None]
  - BACK PAIN [None]
  - MUSCULOSKELETAL PAIN [None]
